FAERS Safety Report 11319281 (Version 3)
Quarter: 2016Q1

REPORT INFORMATION
  Report Type: Spontaneous
  Country: US (occurrence: US)
  Receive Date: 20150729
  Receipt Date: 20160219
  Transmission Date: 20160525
  Serious: No
  Sender: FDA-Public Use
  Company Number: US-ACTELION PHARMACEUTICALS US, INC.-A-US2015-120470

PATIENT
  Age: 65 Year
  Sex: Female

DRUGS (15)
  1. OMEPRAZOLE. [Concomitant]
     Active Substance: OMEPRAZOLE
  2. IMDUR [Concomitant]
     Active Substance: ISOSORBIDE MONONITRATE
  3. GABAPENTIN. [Concomitant]
     Active Substance: GABAPENTIN
  4. CRESTOR [Concomitant]
     Active Substance: ROSUVASTATIN CALCIUM
  5. GLYBURIDE. [Concomitant]
     Active Substance: GLYBURIDE
  6. LISINOPRIL. [Concomitant]
     Active Substance: LISINOPRIL
  7. SERTRALINE [Concomitant]
     Active Substance: SERTRALINE HYDROCHLORIDE
  8. SYNTHROID [Concomitant]
     Active Substance: LEVOTHYROXINE SODIUM
  9. CALCITRIOL. [Concomitant]
     Active Substance: CALCITRIOL
  10. PROAIR HFA [Concomitant]
     Active Substance: ALBUTEROL SULFATE
  11. TRAMADOL. [Concomitant]
     Active Substance: TRAMADOL
  12. LESCOL [Concomitant]
     Active Substance: FLUVASTATIN SODIUM
  13. FUROSEMIDE. [Concomitant]
     Active Substance: FUROSEMIDE
     Dosage: 2 TABLETS, QD
  14. RIOCIGUAT [Concomitant]
     Active Substance: RIOCIGUAT
  15. OPSUMIT [Suspect]
     Active Substance: MACITENTAN
     Indication: PULMONARY ARTERIAL HYPERTENSION
     Dosage: 10 MG, QD
     Route: 048
     Dates: start: 20150604

REACTIONS (5)
  - Rash [Unknown]
  - Skin ulcer [Unknown]
  - Weight increased [Unknown]
  - Fall [Unknown]
  - Oedema peripheral [Unknown]

NARRATIVE: CASE EVENT DATE: 20150610
